APPROVED DRUG PRODUCT: ETHOSUXIMIDE
Active Ingredient: ETHOSUXIMIDE
Strength: 250MG
Dosage Form/Route: CAPSULE;ORAL
Application: A210654 | Product #001 | TE Code: AB
Applicant: PURACAP PHARMACEUTICAL LLC
Approved: Mar 16, 2020 | RLD: No | RS: No | Type: RX